FAERS Safety Report 10339472 (Version 2)
Quarter: 2014Q3

REPORT INFORMATION
  Report Type: Spontaneous
  Country: EG (occurrence: EG)
  Receive Date: 20140724
  Receipt Date: 20140724
  Transmission Date: 20150326
  Serious: Yes (Other)
  Sender: FDA-Public Use
  Company Number: EG-SA-2014SA090896

PATIENT
  Sex: Male

DRUGS (5)
  1. CLEXANE [Suspect]
     Active Substance: ENOXAPARIN SODIUM
     Indication: PROPHYLAXIS
     Route: 065
  2. CLEXANE [Suspect]
     Active Substance: ENOXAPARIN SODIUM
     Indication: PROPHYLAXIS
     Dosage: STRENGTH:60
     Route: 065
  3. DALACIN [Concomitant]
     Active Substance: CLINDAMYCIN\CLINDAMYCIN PHOSPHATE
     Dosage: FREQUENCY: THREE TIMES WEEKLY
  4. CEFTRIAXONE SODIUM. [Concomitant]
     Active Substance: CEFTRIAXONE SODIUM
  5. PANTOPRAZOLE [Concomitant]
     Active Substance: PANTOPRAZOLE SODIUM

REACTIONS (3)
  - Deep vein thrombosis [Recovering/Resolving]
  - Cardiac arrest [Recovering/Resolving]
  - Pulmonary embolism [Unknown]

NARRATIVE: CASE EVENT DATE: 20140703
